FAERS Safety Report 5919388-5 (Version None)
Quarter: 2008Q4

REPORT INFORMATION
  Report Type: 
  Country: None (occurrence: None)
  Receive Date: 20081015
  Receipt Date: 20081010
  Transmission Date: 20090506
  Serious: Yes (Other)
  Sender: FDA-Public Use
  Company Number: B0540668A

PATIENT
  Age: 78 Year
  Sex: Female

DRUGS (2)
  1. VALTREX [Suspect]
     Indication: HERPES ZOSTER
     Dosage: 1000MG THREE TIMES PER DAY
     Route: 048
     Dates: start: 20081003, end: 20081005
  2. CONIEL [Concomitant]
     Indication: DRUG USE FOR UNKNOWN INDICATION
     Route: 048

REACTIONS (7)
  - DELIRIUM [None]
  - DIZZINESS [None]
  - DYSARTHRIA [None]
  - HALLUCINATION, VISUAL [None]
  - NAUSEA [None]
  - NERVOUS SYSTEM DISORDER [None]
  - RESTLESSNESS [None]
